FAERS Safety Report 4425813-1 (Version None)
Quarter: 2004Q3

REPORT INFORMATION
  Report Type: 
  Country: None (occurrence: None)
  Receive Date: 20040719
  Receipt Date: 20040413
  Transmission Date: 20050211
  Serious: No
  Sender: FDA-Public Use
  Company Number: A03200401139

PATIENT
  Sex: Male

DRUGS (5)
  1. UROXATRAL [Suspect]
     Indication: BENIGN PROSTATIC HYPERPLASIA
     Dosage: 10 MG OD - ORAL
     Route: 048
     Dates: start: 20040301
  2. AMLODIPINE BESYLATE [Concomitant]
  3. PRAVASTATIN SODIUM [Concomitant]
  4. ZOLPIDEM TARTRATE [Concomitant]
  5. PREDNISONE [Concomitant]

REACTIONS (1)
  - EJACULATION DISORDER [None]
